FAERS Safety Report 10085731 (Version 1)
Quarter: 2014Q2

REPORT INFORMATION
  Report Type: Spontaneous
  Country: AR (occurrence: AR)
  Receive Date: 20140418
  Receipt Date: 20140418
  Transmission Date: 20141212
  Serious: Yes (Death)
  Sender: FDA-Public Use
  Company Number: AR-AMGEN INC.-ARGSP2014028176

PATIENT
  Age: 70 Year
  Sex: Male

DRUGS (1)
  1. ENBREL [Suspect]
     Indication: RHEUMATOID ARTHRITIS
     Dosage: 50 MG, WEEKLY
     Route: 065
     Dates: start: 20131122

REACTIONS (5)
  - Aortic aneurysm [Fatal]
  - Abdominal pain upper [Unknown]
  - Hypoaesthesia [Unknown]
  - Pain [Unknown]
  - Dyspnoea [Unknown]
